FAERS Safety Report 24914205 (Version 2)
Quarter: 2025Q1

REPORT INFORMATION
  Report Type: Report from Study
  Country: MY (occurrence: MY)
  Receive Date: 20250202
  Receipt Date: 20250212
  Transmission Date: 20250409
  Serious: Yes (Hospitalization)
  Sender: EMD SERONO INC
  Company Number: MY-Merck Healthcare KGaA-2025004468

PATIENT
  Age: 43 Year
  Sex: Female

DRUGS (1)
  1. REBIF [Suspect]
     Active Substance: INTERFERON BETA-1A
     Indication: Relapsing multiple sclerosis

REACTIONS (2)
  - Bone cyst [Not Recovered/Not Resolved]
  - Multiple sclerosis [Not Recovered/Not Resolved]
